FAERS Safety Report 8351738-5 (Version None)
Quarter: 2012Q2

REPORT INFORMATION
  Report Type: 
  Country: None (occurrence: None)
  Receive Date: 20120511
  Receipt Date: 20120503
  Transmission Date: 20120825
  Serious: No
  Sender: FDA-Public Use
  Company Number: US-BIOGENIDEC-2012BI015839

PATIENT
  Age: 31 Year
  Sex: Female

DRUGS (1)
  1. TYSABRI [Suspect]
     Indication: MULTIPLE SCLEROSIS
     Route: 042
     Dates: start: 20120430

REACTIONS (6)
  - THROAT TIGHTNESS [None]
  - ERYTHEMA [None]
  - ADVERSE REACTION [None]
  - HEART RATE INCREASED [None]
  - DYSPNOEA [None]
  - URTICARIA [None]
